FAERS Safety Report 13162343 (Version 1)
Quarter: 2017Q1

REPORT INFORMATION
  Report Type: Spontaneous
  Country: US (occurrence: US)
  Receive Date: 20170125
  Receipt Date: 20170125
  Transmission Date: 20170428
  Serious: Yes (Life-Threatening)
  Sender: FDA-Public Use
  Company Number: None

PATIENT
  Age: 24 Year
  Sex: Female
  Weight: 45.9 kg

DRUGS (2)
  1. BUPRENORPHINE 8 GUMMIES [Suspect]
     Active Substance: BUPRENORPHINE
     Indication: DEPENDENCE
     Dosage: ?          OTHER STRENGTH:GRAPE;QUANTITY:15 TROCHE GRAPE;?
     Route: 060
     Dates: start: 20150731
  2. LIVER SUPPORT TABLETS [Concomitant]

REACTIONS (2)
  - Respiratory arrest [None]
  - Drug effect increased [None]

NARRATIVE: CASE EVENT DATE: 20170116
